FAERS Safety Report 9155045 (Version 1)
Quarter: 2013Q1

REPORT INFORMATION
  Report Type: Spontaneous
  Country: FR (occurrence: FR)
  Receive Date: 20130311
  Receipt Date: 20130311
  Transmission Date: 20140127
  Serious: Yes (Life-Threatening, Hospitalization, Disabling)
  Sender: FDA-Public Use
  Company Number: FR-ROCHE-GNE287991

PATIENT
  Age: 84 Year
  Sex: Male
  Weight: 72.19 kg

DRUGS (17)
  1. LUCENTIS [Suspect]
     Indication: AGE-RELATED MACULAR DEGENERATION
     Dosage: 10 MG/ML
     Route: 050
     Dates: start: 20070704
  2. LUCENTIS [Suspect]
     Dosage: 10 MG/ML
     Route: 050
     Dates: start: 20070905
  3. LUCENTIS [Suspect]
     Dosage: 10 MG/ML
     Route: 050
     Dates: start: 20071024
  4. LUCENTIS [Suspect]
     Dosage: 10MG/ML
     Route: 050
     Dates: start: 20080121
  5. LUCENTIS [Suspect]
     Dosage: 10MG/ML
     Route: 050
     Dates: start: 200804
  6. LUCENTIS [Suspect]
     Dosage: 1MG/ML
     Route: 050
     Dates: start: 20080507
  7. LUCENTIS [Suspect]
     Dosage: 10MG/ML
     Route: 050
     Dates: start: 20090422
  8. FLUINDIONE [Concomitant]
     Indication: ARRHYTHMIA
     Dosage: UNK
     Route: 065
     Dates: start: 2006
  9. STABLON [Concomitant]
     Indication: PRODUCT USED FOR UNKNOWN INDICATION
     Dosage: UNK
     Route: 065
     Dates: start: 1995
  10. ANTIHYPERTENSIVES [Concomitant]
     Indication: HYPERTENSION
     Dosage: UNK
     Route: 065
  11. VALSARTAN [Concomitant]
     Indication: PRODUCT USED FOR UNKNOWN INDICATION
  12. HEMIGOXINE NATIVELLE [Concomitant]
  13. LASILIX [Concomitant]
  14. OMIX [Concomitant]
  15. PROTELOS [Concomitant]
  16. FORLAX (FRANCE) [Concomitant]
  17. STILNOX [Concomitant]

REACTIONS (2)
  - Haemorrhagic stroke [Recovered/Resolved with Sequelae]
  - International normalised ratio increased [Unknown]
